FAERS Safety Report 23900473 (Version 1)
Quarter: 2024Q2

REPORT INFORMATION
  Report Type: Spontaneous
  Country: US (occurrence: None)
  Receive Date: 20240526
  Receipt Date: 20240526
  Transmission Date: 20240715
  Serious: No
  Sender: FDA-Public Use
  Company Number: US-ROCHE-3236809

PATIENT

DRUGS (1)
  1. OCREVUS [Suspect]
     Active Substance: OCRELIZUMAB
     Indication: Product used for unknown indication
     Route: 065

REACTIONS (10)
  - Asthenia [Unknown]
  - Pain [Unknown]
  - Gastritis [Unknown]
  - Sneezing [Unknown]
  - Throat irritation [Unknown]
  - Dry eye [Unknown]
  - Dyspnoea [Unknown]
  - Toothache [Unknown]
  - Nasal congestion [Unknown]
  - Dyspepsia [Unknown]
